FAERS Safety Report 10267387 (Version 1)
Quarter: 2014Q2

REPORT INFORMATION
  Report Type: Spontaneous
  Country: TR (occurrence: TR)
  Receive Date: 20140630
  Receipt Date: 20140630
  Transmission Date: 20141212
  Serious: Yes (Other)
  Sender: FDA-Public Use
  Company Number: TR-MYLANLABS-2014S1014758

PATIENT
  Age: 45 Year
  Sex: Male

DRUGS (4)
  1. ACICLOVIR [Suspect]
     Indication: NECROTISING RETINITIS
     Dosage: 10 MG/KG/DAY
     Route: 041
  2. ACICLOVIR [Suspect]
     Indication: OFF LABEL USE
     Dosage: 10 MG/KG/DAY
     Route: 041
  3. VALACICLOVIR [Suspect]
     Indication: NECROTISING RETINITIS
     Dosage: 2000 MG/DAY
     Route: 048
  4. VALACICLOVIR [Suspect]
     Indication: OFF LABEL USE
     Dosage: 2000 MG/DAY
     Route: 048

REACTIONS (2)
  - Nephropathy toxic [Recovered/Resolved]
  - Hepatitis toxic [Recovered/Resolved]
